FAERS Safety Report 20328838 (Version 3)
Quarter: 2022Q1

REPORT INFORMATION
  Report Type: Spontaneous
  Country: GB (occurrence: GB)
  Receive Date: 20220112
  Receipt Date: 20220217
  Transmission Date: 20220423
  Serious: Yes (Other)
  Sender: FDA-Public Use
  Company Number: GB-AstraZeneca-2021A886415

PATIENT
  Age: 75 Year
  Sex: Female

DRUGS (16)
  1. BISOPROLOL [Suspect]
     Active Substance: BISOPROLOL
     Indication: Product used for unknown indication
     Dosage: UNK
     Route: 065
  2. BISOPROLOL [Suspect]
     Active Substance: BISOPROLOL
     Dosage: BISOPROLOL SALT NOT SPECIFIED
  3. CEREZYME [Suspect]
     Active Substance: IMIGLUCERASE
     Indication: Product used for unknown indication
     Dosage: UNK
     Route: 041
     Dates: end: 20170329
  4. CEREZYME [Suspect]
     Active Substance: IMIGLUCERASE
     Dosage: UNK
     Route: 041
     Dates: end: 20170315
  5. CEREZYME [Suspect]
     Active Substance: IMIGLUCERASE
     Dosage: 800 DF,QOW
     Route: 041
     Dates: end: 20210315
  6. CEREZYME [Suspect]
     Active Substance: IMIGLUCERASE
     Dosage: 800 IU, QOW
     Route: 041
     Dates: end: 20210329
  7. CITALOPRAM [Suspect]
     Active Substance: CITALOPRAM HYDROBROMIDE
     Indication: Product used for unknown indication
     Dosage: UNK UNK,UNK
     Route: 065
  8. BENSERAZIDE HYDROCHLORIDE\LEVODOPA [Suspect]
     Active Substance: BENSERAZIDE HYDROCHLORIDE\LEVODOPA
     Indication: Product used for unknown indication
     Dosage: UNK UNK,UNK
     Route: 065
  9. CYCLIZINE [Suspect]
     Active Substance: CYCLIZINE
     Indication: Product used for unknown indication
     Dosage: UNK
     Dates: start: 20170315
  10. DOMPERIDONE [Suspect]
     Active Substance: DOMPERIDONE
     Indication: Product used for unknown indication
     Dosage: INJECTION/120; ;
     Dates: end: 20170329
  11. LACTULOSE [Suspect]
     Active Substance: LACTULOSE
     Indication: Product used for unknown indication
  12. LANSOPRAZOLE [Suspect]
     Active Substance: LANSOPRAZOLE
     Indication: Product used for unknown indication
  13. QUETIAPINE FUMARATE [Suspect]
     Active Substance: QUETIAPINE FUMARATE
     Indication: Product used for unknown indication
     Route: 048
  14. RIVASTIGMINE [Suspect]
     Active Substance: RIVASTIGMINE
     Indication: Product used for unknown indication
  15. ROPINIROLE [Suspect]
     Active Substance: ROPINIROLE
     Indication: Product used for unknown indication
  16. SENNA [Suspect]
     Active Substance: SENNA LEAF\SENNOSIDES\SENNOSIDES A AND B
     Indication: Product used for unknown indication

REACTIONS (2)
  - Parkinson^s disease [Unknown]
  - Dizziness [Unknown]
